FAERS Safety Report 8893739 (Version 1)
Quarter: 2012Q4

REPORT INFORMATION
  Report Type: 
  Country: US (occurrence: US)
  Receive Date: 20121107
  Receipt Date: 20121107
  Transmission Date: 20130627
  Serious: No
  Sender: FDA-Public Use
  Company Number: US-AMGEN-USASP2011060343

PATIENT
  Sex: Female

DRUGS (1)
  1. ENBREL [Suspect]
     Indication: PSORIASIS
     Dosage: 50 mg, qwk
     Dates: start: 20040101, end: 2005

REACTIONS (4)
  - Upper respiratory tract congestion [Recovered/Resolved]
  - White blood cell count decreased [Recovered/Resolved]
  - Chest pain [Recovered/Resolved]
  - Psoriasis [Recovered/Resolved]
